FAERS Safety Report 5033162-6 (Version None)
Quarter: 2006Q2

REPORT INFORMATION
  Report Type: 
  Country: None (occurrence: None)
  Receive Date: 20060511
  Receipt Date: 20060317
  Transmission Date: 20061013
  Serious: No
  Sender: FDA-Public Use
  Company Number: 200612855US

PATIENT
  Sex: Female

DRUGS (1)
  1. INSULIN GLULISINE (APIDRA) [Suspect]

REACTIONS (2)
  - ARTHRALGIA [None]
  - NERVE COMPRESSION [None]
